FAERS Safety Report 10891201 (Version 5)
Quarter: 2015Q3

REPORT INFORMATION
  Report Type: Spontaneous
  Country: US (occurrence: US)
  Receive Date: 20150306
  Receipt Date: 20150812
  Transmission Date: 20151125
  Serious: Yes (Hospitalization, Other)
  Sender: FDA-Public Use
  Company Number: US-BEH-2015049294

PATIENT
  Age: 52 Year
  Sex: Female
  Weight: 107 kg

DRUGS (3)
  1. HIZENTRA [Suspect]
     Active Substance: HUMAN IMMUNOGLOBULIN G
     Indication: IMMUNODEFICIENCY COMMON VARIABLE
     Route: 058
     Dates: start: 20140805
  2. HIZENTRA [Suspect]
     Active Substance: HUMAN IMMUNOGLOBULIN G
     Dosage: 4 INFUSION SITES
     Route: 058
     Dates: start: 20140812
  3. HIZENTRA [Suspect]
     Active Substance: HUMAN IMMUNOGLOBULIN G
     Dosage: 4 INFUSION SITES
     Route: 058
     Dates: start: 20140812

REACTIONS (12)
  - Pyrexia [Recovered/Resolved]
  - Injection site necrosis [Recovered/Resolved]
  - Wound necrosis [Recovered/Resolved]
  - Staphylococcal abscess [Recovered/Resolved]
  - Peau d^orange [Recovered/Resolved]
  - Wound infection staphylococcal [Recovered/Resolved]
  - Purulent discharge [Recovered/Resolved]
  - Injection site infection [Recovered/Resolved]
  - Skin infection [Recovered/Resolved]
  - Wound abscess [Recovered/Resolved]
  - Injection site cellulitis [Recovered/Resolved]
  - Injection site erythema [Recovered/Resolved]

NARRATIVE: CASE EVENT DATE: 20140812
